FAERS Safety Report 23513310 (Version 1)
Quarter: 2024Q1

REPORT INFORMATION
  Report Type: Spontaneous
  Country: US (occurrence: None)
  Receive Date: 20240210
  Receipt Date: 20240210
  Transmission Date: 20240409
  Serious: No
  Sender: FDA-Public Use
  Company Number: None

PATIENT
  Age: 44 Year
  Sex: Female
  Weight: 91.35 kg

DRUGS (8)
  1. AUVELITY [Suspect]
     Active Substance: BUPROPION HYDROCHLORIDE\DEXTROMETHORPHAN HYDROBROMIDE
     Indication: Depression
  2. AUVELITY [Suspect]
     Active Substance: BUPROPION HYDROCHLORIDE\DEXTROMETHORPHAN HYDROBROMIDE
     Indication: Anxiety
  3. LISINOPRIL [Concomitant]
     Active Substance: LISINOPRIL
  4. ADDERALL [Concomitant]
     Active Substance: AMPHETAMINE ASPARTATE\AMPHETAMINE SULFATE\DEXTROAMPHETAMINE SACCHARATE\DEXTROAMPHETAMINE SULFATE
  5. FAMOTIDINE [Concomitant]
     Active Substance: FAMOTIDINE
  6. Protonix naproxen [Concomitant]
  7. ropinorile [Concomitant]
  8. PROZAC [Concomitant]
     Active Substance: FLUOXETINE HYDROCHLORIDE

REACTIONS (7)
  - Dizziness [None]
  - Dry mouth [None]
  - Hypoacusis [None]
  - Fatigue [None]
  - Irritability [None]
  - Memory impairment [None]
  - Sedation [None]

NARRATIVE: CASE EVENT DATE: 20240208
